FAERS Safety Report 9734885 (Version 2)
Quarter: 2013Q4

REPORT INFORMATION
  Report Type: Spontaneous
  Country: US (occurrence: US)
  Receive Date: 20131206
  Receipt Date: 20131220
  Transmission Date: 20140711
  Serious: Yes (Other)
  Sender: FDA-Public Use
  Company Number: US-JNJFOC-20131202916

PATIENT
  Age: 57 Year
  Sex: Male
  Weight: 77.11 kg

DRUGS (1)
  1. STELARA [Suspect]
     Indication: PSORIASIS
     Route: 058
     Dates: start: 20121102, end: 20130903

REACTIONS (1)
  - Prostate cancer [Recovered/Resolved]
